FAERS Safety Report 4891363-1 (Version None)
Quarter: 2005Q4

REPORT INFORMATION
  Report Type: 
  Country: None (occurrence: None)
  Receive Date: 20051223
  Receipt Date: 20051005
  Transmission Date: 20060501
  Serious: No
  Sender: FDA-Public Use
  Company Number: 218432

PATIENT
  Sex: 0

DRUGS (1)
  1. AVASTIN [Suspect]

REACTIONS (1)
  - RAYNAUD'S PHENOMENON [None]
